FAERS Safety Report 7138211 (Version 6)
Quarter: 2014Q1

REPORT INFORMATION
  Report Type: Spontaneous
  Country: US (occurrence: US)
  Receive Date: 20091002
  Receipt Date: 20140227
  Transmission Date: 20141002
  Serious: Yes (Other)
  Sender: FDA-Public Use
  Company Number: US-ASTRAZENECA-2009UW08335

PATIENT
  Age: 61 Year
  Sex: Female
  Weight: 81.2 kg

DRUGS (11)
  1. ARIMIDEX [Suspect]
     Indication: BREAST CANCER
     Route: 048
     Dates: start: 2006
  2. NEXIUM [Suspect]
     Indication: GASTROOESOPHAGEAL REFLUX DISEASE
     Route: 048
     Dates: start: 2004, end: 20140214
  3. OMEPRAZOLE [Suspect]
     Indication: GASTROOESOPHAGEAL REFLUX DISEASE
     Route: 048
     Dates: start: 20140215
  4. OMEPRAZOLE [Suspect]
     Indication: GASTROOESOPHAGEAL REFLUX DISEASE
     Route: 048
  5. ZOMIG [Suspect]
     Dosage: DAILY
     Route: 048
  6. PAXIL [Concomitant]
  7. XANAX [Concomitant]
     Indication: ANXIETY
     Dosage: GENERIC
     Route: 048
  8. HCTZ [Concomitant]
  9. POTASSIUM [Concomitant]
  10. FLEXERIL [Concomitant]
  11. VICODIN [Concomitant]

REACTIONS (29)
  - Neoplasm malignant [Unknown]
  - Normal tension glaucoma [Not Recovered/Not Resolved]
  - Cataract [Not Recovered/Not Resolved]
  - Breast cancer [Recovered/Resolved]
  - Melanocytic naevus [Unknown]
  - Tension headache [Unknown]
  - Migraine [Unknown]
  - Weight increased [Unknown]
  - Emotional disorder [Unknown]
  - Gastrooesophageal reflux disease [Not Recovered/Not Resolved]
  - Cough [Unknown]
  - Weight decreased [Unknown]
  - Chest pain [Not Recovered/Not Resolved]
  - Dry mouth [Unknown]
  - Constipation [Unknown]
  - Insomnia [Not Recovered/Not Resolved]
  - Malaise [Unknown]
  - Hot flush [Recovered/Resolved]
  - Joint swelling [Unknown]
  - Salivary gland disorder [Not Recovered/Not Resolved]
  - Osteopenia [Unknown]
  - Lung disorder [Unknown]
  - Hyperhidrosis [Unknown]
  - Vomiting [Unknown]
  - Alopecia [Unknown]
  - Headache [Unknown]
  - Intentional drug misuse [Unknown]
  - Drug dose omission [Not Recovered/Not Resolved]
  - Drug ineffective [Not Recovered/Not Resolved]
